FAERS Safety Report 5297840-6 (Version None)
Quarter: 2007Q2

REPORT INFORMATION
  Report Type: 
  Country: None (occurrence: None)
  Receive Date: 20070413
  Receipt Date: 20070413
  Transmission Date: 20071010
  Serious: Yes (Hospitalization)
  Sender: FDA-Public Use
  Company Number: None

PATIENT
  Sex: Female
  Weight: 105 kg

DRUGS (2)
  1. CYCLOPHOSPHAMIDE [Suspect]
     Dosage: 1218 MG
  2. DOXORUBICIN HYDROCHLORIDE [Suspect]
     Dosage: 122 MG

REACTIONS (6)
  - BODY TEMPERATURE INCREASED [None]
  - CELLULITIS [None]
  - HAEMOGLOBIN DECREASED [None]
  - REFUSAL OF TREATMENT BY PATIENT [None]
  - WHITE BLOOD CELL COUNT DECREASED [None]
  - WRONG DRUG ADMINISTERED [None]
